FAERS Safety Report 11812064 (Version 1)
Quarter: 2015Q4

REPORT INFORMATION
  Report Type: Spontaneous
  Country: GB (occurrence: GB)
  Receive Date: 20151208
  Receipt Date: 20151208
  Transmission Date: 20160305
  Serious: Yes (Other)
  Sender: FDA-Public Use
  Company Number: PHHY2015GB156634

PATIENT
  Age: 17 Year
  Sex: Male
  Weight: 70 kg

DRUGS (1)
  1. PHENOXYMETHYLPENICILLIN [Suspect]
     Active Substance: PENICILLIN V
     Indication: PRODUCT USED FOR UNKNOWN INDICATION
     Route: 065
     Dates: start: 20151119

REACTIONS (3)
  - Rash [Unknown]
  - Hypersensitivity [Unknown]
  - Dyspnoea [Unknown]

NARRATIVE: CASE EVENT DATE: 20151119
